FAERS Safety Report 13500137 (Version 1)
Quarter: 2017Q2

REPORT INFORMATION
  Report Type: Spontaneous
  Country: US (occurrence: US)
  Receive Date: 20170501
  Receipt Date: 20170501
  Transmission Date: 20170830
  Serious: Yes (Other)
  Sender: FDA-Public Use
  Company Number: None

PATIENT
  Age: 70 Year
  Sex: Male
  Weight: 105.7 kg

DRUGS (8)
  1. REPATHA [Suspect]
     Active Substance: EVOLOCUMAB
     Indication: BLOOD CHOLESTEROL INCREASED
     Dosage: ?          QUANTITY:1 INJECTION(S);OTHER FREQUENCY:EVERY 14 DAYS;?
     Route: 030
     Dates: start: 20170314, end: 20170411
  2. COLCHICNE [Concomitant]
  3. COQ10 [Concomitant]
     Active Substance: UBIDECARENONE
  4. MULTI VITAMIN [Concomitant]
     Active Substance: VITAMINS
  5. LOW DOSE ASPIRIN [Concomitant]
     Active Substance: ASPIRIN
  6. VITAMIN B12 [Concomitant]
     Active Substance: CYANOCOBALAMIN
  7. MOVE FREE (GLUCOSAMINE,CHONDROITIN, UNIFLEX, HYALUONIC ACID) [Concomitant]
  8. VITAMIN D3 [Concomitant]
     Active Substance: CHOLECALCIFEROL

REACTIONS (3)
  - Skin ulcer [None]
  - Weight increased [None]
  - Rash [None]

NARRATIVE: CASE EVENT DATE: 20170314
